FAERS Safety Report 7881228-5 (Version None)
Quarter: 2011Q4

REPORT INFORMATION
  Report Type: 
  Country: None (occurrence: None)
  Receive Date: 20111101
  Receipt Date: 20110608
  Transmission Date: 20120403
  Serious: No
  Sender: FDA-Public Use
  Company Number: US-AMGEN-USASP2011029681

PATIENT
  Age: 49 Year
  Sex: Female

DRUGS (1)
  1. ENBREL [Suspect]
     Indication: RHEUMATOID ARTHRITIS
     Dosage: 50 MG, QWK
     Dates: start: 20110513, end: 20110529

REACTIONS (9)
  - MYALGIA [None]
  - HYPERHIDROSIS [None]
  - CHILLS [None]
  - PYREXIA [None]
  - ASTHENIA [None]
  - INFLUENZA LIKE ILLNESS [None]
  - FATIGUE [None]
  - URINE ABNORMALITY [None]
  - DYSURIA [None]
